FAERS Safety Report 26002908 (Version 1)
Quarter: 2025Q4

REPORT INFORMATION
  Report Type: Spontaneous
  Country: US (occurrence: US)
  Receive Date: 20251106
  Receipt Date: 20251106
  Transmission Date: 20260118
  Serious: No
  Sender: SANOFI AVENTIS
  Company Number: US-SANOFI-02698313

PATIENT
  Sex: Female

DRUGS (1)
  1. DUPIXENT [Suspect]
     Active Substance: DUPILUMAB
     Indication: Asthma
     Dosage: 300 MG, QOW

REACTIONS (6)
  - Dyspnoea [Unknown]
  - Eosinophilic pleural effusion [Unknown]
  - Cough [Unknown]
  - Pyrexia [Unknown]
  - Chills [Unknown]
  - Eosinophil count increased [Unknown]
